FAERS Safety Report 9850886 (Version 2)
Quarter: 2014Q1

REPORT INFORMATION
  Report Type: Spontaneous
  Country: CA (occurrence: US)
  Receive Date: 20140128
  Receipt Date: 20140128
  Transmission Date: 20141002
  Serious: Yes (Hospitalization, Other)
  Sender: FDA-Public Use
  Company Number: CA-EXELIXIS-CABO-13003636

PATIENT
  Age: 44 Year
  Sex: Male
  Weight: 83.45 kg

DRUGS (14)
  1. COMETRIQ [Suspect]
     Indication: GLIOBLASTOMA
     Dosage: 140 MG, QD
     Route: 048
     Dates: start: 201306, end: 20130723
  2. COMETRIQ [Suspect]
     Dosage: 140 MG, QD
     Route: 048
     Dates: start: 20130903, end: 20130927
  3. COMETRIQ [Suspect]
     Dosage: 80 MG, QD
     Route: 048
     Dates: start: 20131206, end: 2013
  4. COMETRIQ [Suspect]
     Dosage: 60 MG, QD
     Route: 048
     Dates: start: 2013, end: 2013
  5. COMETRIQ [Suspect]
     Dosage: 40 MG, QD
     Route: 048
     Dates: start: 2013
  6. AFINITOR [Concomitant]
  7. DECADRON [Concomitant]
  8. LOVENOX [Concomitant]
  9. ANTIDIARRHEALS, INTESTINAL ANTIINFLAMMATORY/A [Concomitant]
  10. ANALGESICS [Concomitant]
  11. ZOFRAN [Concomitant]
  12. LEXAPRO [Concomitant]
  13. VITAMIN D [Concomitant]
  14. IRINOTECAN [Concomitant]

REACTIONS (13)
  - Convulsion [Recovered/Resolved]
  - Hydrocephalus [Recovered/Resolved]
  - Urinary tract infection [Recovered/Resolved]
  - Gastrointestinal haemorrhage [Recovered/Resolved]
  - Splenic haematoma [Recovered/Resolved]
  - Haemorrhage [Recovered/Resolved]
  - Thrombosis [Not Recovered/Not Resolved]
  - Local swelling [Not Recovered/Not Resolved]
  - Mobility decreased [Recovering/Resolving]
  - Cognitive disorder [Recovering/Resolving]
  - Speech disorder [Recovering/Resolving]
  - Stomatitis [Not Recovered/Not Resolved]
  - Off label use [Unknown]
